FAERS Safety Report 17206254 (Version 2)
Quarter: 2021Q3

REPORT INFORMATION
  Report Type: Other
  Country: CA (occurrence: CA)
  Receive Date: 20191227
  Receipt Date: 20210824
  Transmission Date: 20211014
  Serious: Yes (Other)
  Sender: FDA-Public Use
  Company Number: CA-APOTEX-2019AP026293

PATIENT
  Age: 61 Year
  Sex: Male

DRUGS (3)
  1. OLANZAPINE. [Suspect]
     Active Substance: OLANZAPINE
     Indication: DEPRESSIVE SYMPTOM
  2. OLANZAPINE. [Suspect]
     Active Substance: OLANZAPINE
     Indication: DEPRESSED MOOD
     Dosage: 2.5 MILLIGRAM, QD
     Route: 065
  3. OLANZAPINE. [Suspect]
     Active Substance: OLANZAPINE
     Indication: PRODUCT USED FOR UNKNOWN INDICATION
     Dosage: 5 MILLIGRAM, QD
     Route: 065

REACTIONS (1)
  - Parkinsonism [Recovered/Resolved]
